FAERS Safety Report 9472858 (Version 1)
Quarter: 2013Q3

REPORT INFORMATION
  Report Type: Spontaneous
  Country: US (occurrence: US)
  Receive Date: 20130823
  Receipt Date: 20130823
  Transmission Date: 20140515
  Serious: Yes (Other)
  Sender: FDA-Public Use
  Company Number: US-JNJFOC-20130809937

PATIENT
  Age: 67 Year
  Sex: Female
  Weight: 81.65 kg

DRUGS (7)
  1. XARELTO [Suspect]
     Indication: CEREBROVASCULAR ACCIDENT PROPHYLAXIS
     Route: 048
  2. XARELTO [Suspect]
     Indication: CEREBROVASCULAR ACCIDENT PROPHYLAXIS
     Dosage: WITH EVENING MEAL
     Route: 048
     Dates: start: 201304, end: 20130816
  3. XARELTO [Suspect]
     Indication: ATRIAL FIBRILLATION
     Route: 048
  4. XARELTO [Suspect]
     Indication: ATRIAL FIBRILLATION
     Dosage: WITH EVENING MEAL
     Route: 048
     Dates: start: 201304, end: 20130816
  5. METFORMIN [Concomitant]
     Indication: DIABETES MELLITUS
     Dosage: ABOUT 5 YEARS
     Route: 048
  6. DILTIAZEM [Concomitant]
     Indication: ARRHYTHMIA PROPHYLAXIS
     Route: 048
     Dates: start: 201301
  7. LISINOPRIL WITH HCTZ [Concomitant]
     Indication: BLOOD PRESSURE
     Dosage: ABOUT 6 YEARS
     Route: 048
     Dates: start: 201301

REACTIONS (4)
  - Atrial fibrillation [Recovered/Resolved]
  - Chromaturia [Recovered/Resolved]
  - Mouth haemorrhage [Recovered/Resolved]
  - Therapeutic response unexpected [Not Recovered/Not Resolved]
